FAERS Safety Report 19735331 (Version 1)
Quarter: 2021Q3

REPORT INFORMATION
  Report Type: Report from Study
  Country: None (occurrence: US)
  Receive Date: 20210823
  Receipt Date: 20210823
  Transmission Date: 20211014
  Serious: Yes (Other)
  Sender: FDA-Public Use
  Company Number: US-ABBVIE-21K-163-4045929-00

PATIENT
  Sex: Male

DRUGS (1)
  1. IMBRUVICA [Suspect]
     Active Substance: IBRUTINIB
     Indication: PRODUCT USED FOR UNKNOWN INDICATION
     Route: 048

REACTIONS (7)
  - Diabetes mellitus [Recovering/Resolving]
  - Diverticulitis [Recovering/Resolving]
  - Parkinson^s disease [Recovering/Resolving]
  - Cataract [Recovering/Resolving]
  - Lymphoma [Recovering/Resolving]
  - Vascular graft [Recovering/Resolving]
  - Heart rate abnormal [Recovering/Resolving]
